FAERS Safety Report 6634748-5 (Version None)
Quarter: 2010Q1

REPORT INFORMATION
  Report Type: 
  Country: None (occurrence: None)
  Receive Date: 20100225
  Receipt Date: 20090729
  Transmission Date: 20100710
  Serious: No
  Sender: FDA-Public Use
  Company Number: 2009-00600

PATIENT
  Age: 58 Year
  Sex: Female
  Weight: 61.2356 kg

DRUGS (9)
  1. ZICAM COLD REMEDY RAPIDMELTS WITH VITAMIN C [Suspect]
     Dosage: ^ A COUPLE OF YEARS AGO^
  2. ZICAM COLD REMEDY COUGH PLUS D SPRAY [Suspect]
     Dosage: ^A COUPLE OF YEARS AGO^
  3. ZICAM COLD REMEDY CHEWABLES [Suspect]
     Dates: start: 20090401
  4. ZICAM COLD REMEDY ORAL MIST [Suspect]
     Dates: start: 20090401
  5. ASPIRIN [Concomitant]
  6. MULTI-VITAMIN [Concomitant]
  7. VITAMIN C [Concomitant]
  8. METOPROLOL TARTRATE [Concomitant]
  9. ZOLOFT [Concomitant]

REACTIONS (2)
  - AGEUSIA [None]
  - ANOSMIA [None]
